FAERS Safety Report 7677534-X (Version None)
Quarter: 2011Q3

REPORT INFORMATION
  Report Type: 
  Country: None (occurrence: None)
  Receive Date: 20110811
  Receipt Date: 20110802
  Transmission Date: 20111222
  Serious: Yes (Life-Threatening, Hospitalization)
  Sender: FDA-Public Use
  Company Number: AU-JNJFOC-20110706092

PATIENT
  Sex: Male

DRUGS (37)
  1. ABIRATERONE ACETATE [Suspect]
     Route: 048
     Dates: start: 20101108
  2. SPAN K [Concomitant]
     Indication: MINERAL SUPPLEMENTATION
     Route: 048
     Dates: start: 20080401
  3. CALCIUM COMPLETE [Concomitant]
     Indication: MINERAL SUPPLEMENTATION
     Route: 048
     Dates: start: 19980101
  4. COLOXYL AND SENNA [Concomitant]
     Route: 048
     Dates: start: 20100907
  5. NOVOLOG [Concomitant]
     Indication: TYPE 2 DIABETES MELLITUS
     Route: 058
     Dates: start: 20110325, end: 20110328
  6. NOVOLOG [Concomitant]
     Route: 058
     Dates: start: 20110317, end: 20110324
  7. ENDEP [Concomitant]
     Indication: PRODUCT USED FOR UNKNOWN INDICATION
     Route: 048
     Dates: start: 20101002
  8. ASPIRIN [Concomitant]
     Indication: CARDIOVASCULAR EVENT PROPHYLAXIS
     Route: 048
     Dates: start: 19930101
  9. COLOXYL AND SENNA [Concomitant]
     Indication: CONSTIPATION PROPHYLAXIS
     Route: 048
     Dates: start: 20100907
  10. LORAZEPAM [Concomitant]
     Indication: PROPHYLAXIS
     Route: 048
     Dates: start: 20100430
  11. ACTIQ [Concomitant]
     Indication: CANCER PAIN
     Route: 048
     Dates: start: 20100601
  12. OXYCODONE HCL [Concomitant]
     Indication: CANCER PAIN
     Route: 048
     Dates: start: 20100601, end: 20100601
  13. OXYCONTIN [Concomitant]
     Indication: CANCER PAIN
     Route: 048
     Dates: start: 20070806, end: 20110624
  14. MAGNESIUM FORTE [Concomitant]
     Indication: MINERAL SUPPLEMENTATION
     Route: 048
     Dates: start: 19980101
  15. AGAROL LAXATIVE [Concomitant]
     Indication: CONSTIPATION PROPHYLAXIS
     Route: 048
     Dates: start: 20090327, end: 20090327
  16. LEUPROLIDE ACETATE [Concomitant]
     Indication: HORMONE THERAPY
     Route: 058
     Dates: start: 20070305
  17. ABIRATERONE ACETATE [Suspect]
     Indication: PROSTATE CANCER METASTATIC
     Route: 048
     Dates: start: 20101015, end: 20101102
  18. COENZYME Q10 [Concomitant]
     Indication: VITAMIN SUPPLEMENTATION
     Route: 048
     Dates: start: 19980101
  19. FISH OIL [Concomitant]
     Indication: MEDICAL DIET
     Route: 048
     Dates: start: 19980101
  20. COLOXYL AND SENNA [Concomitant]
     Indication: CONSTIPATION
     Route: 048
     Dates: start: 20080101
  21. COLOXYL AND SENNA [Concomitant]
     Route: 048
     Dates: start: 20080101
  22. LEUPROLIDE ACETATE [Concomitant]
     Route: 058
     Dates: start: 20080821
  23. PANTOPRAZOLE [Concomitant]
     Indication: GASTROOESOPHAGEAL REFLUX PROPHYLAXIS
     Route: 048
     Dates: start: 20101112
  24. ATORVASTATIN CALCIUM [Concomitant]
     Indication: BLOOD CHOLESTEROL INCREASED
     Route: 048
     Dates: start: 19950101, end: 20101101
  25. NAPROXEN [Concomitant]
     Indication: OSTEOARTHRITIS
     Route: 048
     Dates: start: 20080101, end: 20101101
  26. MAXOLON [Concomitant]
     Indication: PROPHYLAXIS OF NAUSEA AND VOMITING
     Route: 048
     Dates: start: 20070801
  27. NOVOLOG [Concomitant]
     Route: 058
     Dates: start: 20110329
  28. FUROSEMIDE [Concomitant]
     Indication: HYPERTENSION
     Route: 048
     Dates: start: 20080401, end: 20110711
  29. BLACKMORES CHEWABLE BIO CALCIUM [Concomitant]
     Indication: VITAMIN SUPPLEMENTATION
     Route: 048
     Dates: start: 19980101
  30. BLACKMORES MULTIVITAMINS AND MINERALS [Concomitant]
     Indication: VITAMIN SUPPLEMENTATION
     Route: 048
     Dates: start: 19980101, end: 20110124
  31. DIAZEPAM [Concomitant]
     Indication: PROPHYLAXIS
     Route: 048
     Dates: start: 20090601
  32. PREDNISONE [Suspect]
     Indication: PROSTATE CANCER METASTATIC
     Route: 048
     Dates: start: 20101015
  33. SODIUM CHLORIDE [Concomitant]
     Indication: RENAL IMPAIRMENT
     Route: 042
     Dates: start: 20101103
  34. ABIRATERONE ACETATE [Suspect]
     Route: 048
     Dates: start: 20080821, end: 20101014
  35. DURAGESIC-100 [Concomitant]
     Indication: CANCER PAIN
     Route: 062
     Dates: start: 20101112
  36. ZOMETA [Concomitant]
     Indication: PROPHYLAXIS
     Route: 042
     Dates: start: 20070514
  37. MOVIPREP [Concomitant]
     Indication: CONSTIPATION PROPHYLAXIS
     Route: 048
     Dates: start: 20090327

REACTIONS (1)
  - MYOCARDIAL INFARCTION [None]
